FAERS Safety Report 7654775-9 (Version None)
Quarter: 2011Q3

REPORT INFORMATION
  Report Type: 
  Country: None (occurrence: None)
  Receive Date: 20110804
  Receipt Date: 20110727
  Transmission Date: 20111222
  Serious: No
  Sender: FDA-Public Use
  Company Number: US-BIOGENIDEC-2011BI028317

PATIENT
  Age: 52 Year
  Sex: Female

DRUGS (2)
  1. TYSABRI [Suspect]
     Indication: MULTIPLE SCLEROSIS
     Route: 042
     Dates: start: 20080619, end: 20110201
  2. TYSABRI [Suspect]
     Route: 042
     Dates: start: 20110501

REACTIONS (5)
  - DYSSTASIA [None]
  - BALANCE DISORDER [None]
  - MUSCULAR WEAKNESS [None]
  - GAIT DISTURBANCE [None]
  - POSTURE ABNORMAL [None]
